FAERS Safety Report 9059140 (Version 1)
Quarter: 2013Q1

REPORT INFORMATION
  Report Type: Spontaneous
  Country: US (occurrence: US)
  Receive Date: 20130211
  Receipt Date: 20130211
  Transmission Date: 20140127
  Serious: No
  Sender: FDA-Public Use
  Company Number: US-BRISTOL-MYERS SQUIBB COMPANY-17012402

PATIENT
  Sex: Male

DRUGS (3)
  1. METFORMIN HCL [Suspect]
  2. LANTUS [Suspect]
     Dosage: 1DF:60 UNITS?PARENTERAL/INJECTION,SOLUTION/100 INTERNATION UNITS/MILLILITRE (100 IU/ML)
     Route: 051
  3. NOVOLOG [Suspect]
     Dates: start: 201206

REACTIONS (2)
  - Oedema peripheral [Not Recovered/Not Resolved]
  - Blood glucose increased [Not Recovered/Not Resolved]
